FAERS Safety Report 4939413-8 (Version None)
Quarter: 2006Q1

REPORT INFORMATION
  Report Type: 
  Country: None (occurrence: None)
  Receive Date: 20060307
  Receipt Date: 20060220
  Transmission Date: 20060701
  Serious: Yes (Other)
  Sender: FDA-Public Use
  Company Number: 2006-DE-00988GD

PATIENT
  Sex: 0

DRUGS (3)
  1. ZIDOVUDINE [Suspect]
     Dosage: NR, IU
     Route: 015
  2. DIDANOSINE [Suspect]
     Dosage: NR, IU
     Route: 015
  3. INDINAVIR (INDINAVIR) [Suspect]
     Dosage: NR, IU
     Route: 015

REACTIONS (2)
  - DRUG EXPOSURE DURING PREGNANCY [None]
  - SMALL FOR DATES BABY [None]
